FAERS Safety Report 24381194 (Version 5)
Quarter: 2025Q1

REPORT INFORMATION
  Report Type: Spontaneous
  Country: US (occurrence: US)
  Receive Date: 20241001
  Receipt Date: 20250318
  Transmission Date: 20250409
  Serious: No
  Sender: SANOFI AVENTIS
  Company Number: US-SA-2024SA274850

PATIENT
  Age: 57 Year
  Sex: Female

DRUGS (1)
  1. DUPIXENT [Suspect]
     Active Substance: DUPILUMAB
     Indication: Asthma
     Dosage: 300 MG, QOW
     Route: 058
     Dates: start: 20230919

REACTIONS (6)
  - Impaired quality of life [Not Recovered/Not Resolved]
  - Injection site reaction [Unknown]
  - Eye irritation [Unknown]
  - Injection site pain [Not Recovered/Not Resolved]
  - Asthma [Not Recovered/Not Resolved]
  - Drug ineffective [Not Recovered/Not Resolved]

NARRATIVE: CASE EVENT DATE: 20241001
